FAERS Safety Report 7685769-5 (Version None)
Quarter: 2011Q3

REPORT INFORMATION
  Report Type: 
  Country: None (occurrence: None)
  Receive Date: 20110815
  Receipt Date: 20110815
  Transmission Date: 20111222
  Serious: Yes (Hospitalization)
  Sender: FDA-Public Use
  Company Number: None

PATIENT
  Age: 66 Year
  Sex: Female
  Weight: 142.9 kg

DRUGS (21)
  1. TIKOSYN [Concomitant]
  2. LANTUS [Concomitant]
     Route: 058
  3. ZETIA [Concomitant]
     Route: 048
  4. LORTAB [Concomitant]
     Route: 048
  5. SPIRONOLACTONE [Concomitant]
     Route: 048
  6. HUMALOG [Concomitant]
  7. MULTIVITAMIN WITH IRON [Concomitant]
  8. ALLEGRA [Concomitant]
     Route: 048
  9. .DILTIAZEM CD [Concomitant]
     Route: 048
  10. PRADAXA [Suspect]
     Indication: ATRIAL FIBRILLATION
     Dosage: 150 MG
     Route: 048
  11. CRESTOR [Concomitant]
     Route: 048
  12. LASIX [Concomitant]
     Route: 048
  13. MAGNESIUM OXIDE [Concomitant]
     Route: 048
  14. ALBUTEROL SULFATE AUTOHALER [Concomitant]
  15. LEVOTHYROXINE SODIUM [Concomitant]
     Route: 048
  16. ALLOPURINOL [Concomitant]
  17. LASIX [Concomitant]
     Route: 048
  18. LOSARTAN POTASSIUM [Concomitant]
     Route: 048
  19. IBUPROFEN [Concomitant]
     Route: 048
  20. VITAMIN D [Concomitant]
     Route: 048
  21. PRADAXA [Concomitant]
     Route: 048

REACTIONS (3)
  - DIZZINESS [None]
  - RECTAL HAEMORRHAGE [None]
  - LOWER GASTROINTESTINAL HAEMORRHAGE [None]
